FAERS Safety Report 22915193 (Version 3)
Quarter: 2023Q4

REPORT INFORMATION
  Report Type: Spontaneous
  Country: US (occurrence: US)
  Receive Date: 20230907
  Receipt Date: 20231009
  Transmission Date: 20240110
  Serious: No
  Sender: FDA-Public Use
  Company Number: US-AMGEN-USASP2023156942

PATIENT

DRUGS (2)
  1. OTEZLA [Suspect]
     Active Substance: APREMILAST
     Indication: Product used for unknown indication
     Dosage: UNK
     Route: 048
  2. HUMIRA [Concomitant]
     Active Substance: ADALIMUMAB
     Route: 065

REACTIONS (6)
  - Arthritis [Not Recovered/Not Resolved]
  - Therapeutic product effect incomplete [Unknown]
  - Fatigue [Unknown]
  - Gastrointestinal disorder [Unknown]
  - Depressed mood [Unknown]
  - Diarrhoea [Unknown]
